FAERS Safety Report 14631183 (Version 6)
Quarter: 2019Q1

REPORT INFORMATION
  Report Type: Report from Study
  Country: CO (occurrence: CO)
  Receive Date: 20180313
  Receipt Date: 20190321
  Transmission Date: 20190417
  Serious: Yes (Hospitalization, Other)
  Sender: FDA-Public Use
  Company Number: CO-BAYER-2017-244787

PATIENT
  Age: 59 Year
  Sex: Male

DRUGS (4)
  1. NEXAVAR [Suspect]
     Active Substance: SORAFENIB
     Indication: POORLY DIFFERENTIATED THYROID CARCINOMA
     Dosage: 600 MG, QD
     Route: 048
     Dates: start: 20171129
  2. NEXAVAR [Suspect]
     Active Substance: SORAFENIB
     Indication: POORLY DIFFERENTIATED THYROID CARCINOMA
     Dosage: DECRESED DOSAGE
  3. NEXAVAR [Suspect]
     Active Substance: SORAFENIB
     Indication: POORLY DIFFERENTIATED THYROID CARCINOMA
     Dosage: 200 MG, BID
     Route: 048
     Dates: start: 20181004
  4. LEVOTHYROXINE. [Concomitant]
     Active Substance: LEVOTHYROXINE
     Dosage: UNK

REACTIONS (13)
  - Electrocardiogram QT interval abnormal [Recovering/Resolving]
  - Tracheal obstruction [Not Recovered/Not Resolved]
  - Cardiac disorder [Not Recovered/Not Resolved]
  - Abdominal pain [Not Recovered/Not Resolved]
  - Product use in unapproved indication [None]
  - Poorly differentiated thyroid carcinoma [Not Recovered/Not Resolved]
  - Off label use [None]
  - Pulmonary thrombosis [Not Recovered/Not Resolved]
  - Laryngeal obstruction [Not Recovered/Not Resolved]
  - Product prescribing issue [None]
  - Off label use [Not Recovered/Not Resolved]
  - Oesophageal obstruction [Not Recovered/Not Resolved]
  - Flatulence [Not Recovered/Not Resolved]

NARRATIVE: CASE EVENT DATE: 20171129
